FAERS Safety Report 10289491 (Version 1)
Quarter: 2014Q3

REPORT INFORMATION
  Report Type: Spontaneous
  Country: US (occurrence: None)
  Receive Date: 20140707
  Receipt Date: 20140707
  Transmission Date: 20150326
  Serious: Yes (Hospitalization)
  Sender: FDA-Public Use
  Company Number: UNT-2014-000699

PATIENT
  Age: 60 Year
  Sex: Female
  Weight: 70.3 kg

DRUGS (1)
  1. REMODULIN [Suspect]
     Active Substance: TREPROSTINIL
     Indication: PULMONARY ARTERIAL HYPERTENSION
     Dosage: 0.009 UG/KG/MIN
     Route: 041
     Dates: start: 20140430

REACTIONS (4)
  - Medical device complication [None]
  - Hypersensitivity [None]
  - Injection site irritation [None]
  - Skin irritation [None]

NARRATIVE: CASE EVENT DATE: 201405
